FAERS Safety Report 5340971-2 (Version None)
Quarter: 2007Q2

REPORT INFORMATION
  Report Type: 
  Country: None (occurrence: None)
  Receive Date: 20070405
  Receipt Date: 20061102
  Transmission Date: 20071010
  Serious: No
  Sender: FDA-Public Use
  Company Number: US200607002594

PATIENT
  Age: 49 Year
  Sex: Female

DRUGS (6)
  1. CYMBALTA [Suspect]
     Indication: DEPRESSION
     Dosage: 30 MG
     Dates: start: 20060629
  2. PROZAC [Suspect]
     Indication: DEPRESSION
     Dosage: 80 MG
     Dates: start: 20050101, end: 20060101
  3. CELEBREX [Concomitant]
  4. TOPROL-XL [Concomitant]
  5. DIOVAN [Concomitant]
  6. PREMARIN [Concomitant]

REACTIONS (4)
  - DISCOMFORT [None]
  - HYPERHIDROSIS [None]
  - INCREASED APPETITE [None]
  - MUSCLE TWITCHING [None]
